FAERS Safety Report 5006160-6 (Version None)
Quarter: 2006Q1

REPORT INFORMATION
  Report Type: 
  Country: None (occurrence: None)
  Receive Date: 20060328
  Receipt Date: 20050214
  Transmission Date: 20060701
  Serious: Yes (Hospitalization)
  Sender: FDA-Public Use
  Company Number: K200500227

PATIENT
  Age: 66 Year
  Sex: Male
  Weight: 96.6 kg

DRUGS (7)
  1. ALTACE [Suspect]
     Indication: HYPERTENSION
     Dosage: 10 MG, QD, ORAL
     Route: 048
     Dates: start: 20040101, end: 20050101
  2. BABYPRIN (ACETYLSALICYLIC ACID) [Concomitant]
  3. LEXAPRO [Concomitant]
  4. ONE-A-DAY (ASCORBIC ACID, ERGOCALCIFEROL, NICOTINAMIDE, PYRIDOXINE HYD [Concomitant]
  5. CYANOCOBALAMIN, THIAMINE MONONITRATE) [Concomitant]
  6. COQ10 (UBIDECARENONE) [Concomitant]
  7. CYANOCOBALAMIN [Concomitant]

REACTIONS (3)
  - ANGINA PECTORIS [None]
  - FATIGUE [None]
  - PARAESTHESIA [None]
